FAERS Safety Report 7016925-7 (Version None)
Quarter: 2010Q3

REPORT INFORMATION
  Report Type: 
  Country: None (occurrence: None)
  Receive Date: 20100927
  Receipt Date: 20100917
  Transmission Date: 20110219
  Serious: Yes (Life-Threatening, Hospitalization)
  Sender: FDA-Public Use
  Company Number: FR-PFIZER INC-2010119668

PATIENT
  Age: 60 Year
  Sex: Female

DRUGS (26)
  1. ATARAX [Suspect]
     Dosage: 50 MG BID + 100 MG BID, 2X/DAY
     Route: 048
     Dates: end: 20100810
  2. ATARAX [Suspect]
     Dosage: 50 MG BID +100 MG BID
     Route: 048
     Dates: start: 20100901
  3. REMICADE [Suspect]
     Indication: RHEUMATOID ARTHRITIS
     Dosage: 5 MG/KG, EVERY 6 WEEKS
     Route: 042
     Dates: start: 20081201, end: 20100716
  4. NOVATREX ^LEDERLE^ [Suspect]
     Indication: RHEUMATOID ARTHRITIS
     Dosage: 6/WEEK
     Route: 048
     Dates: start: 20000101, end: 20100810
  5. CORTANCYL [Suspect]
     Indication: RHEUMATOID ARTHRITIS
     Dosage: 14 MG, UNK
     Route: 048
     Dates: start: 20100201, end: 20100810
  6. CORTANCYL [Suspect]
     Dosage: 28 MG, 1X/DAY
     Route: 048
     Dates: start: 20100811
  7. SPECIAFOLDINE [Suspect]
     Dosage: 5 MG, 3/WEEK
     Route: 048
     Dates: end: 20100810
  8. SPECIAFOLDINE [Suspect]
     Dosage: 5 MG, 3/WEEK
     Route: 048
     Dates: start: 20100901
  9. NORSET [Suspect]
     Dosage: 30 MG, UNK
     Route: 048
     Dates: end: 20100810
  10. NORSET [Suspect]
     Dosage: 30 MG, UNK
     Route: 048
     Dates: start: 20100901
  11. TRANXENE [Suspect]
     Dosage: 10 MG, MICROGRANULES IN SLOW RELEASE CAPSULE
     Route: 048
     Dates: end: 20100810
  12. TRANXENE [Suspect]
     Dosage: 10 MG, MICROGRANULES IN SLOW RELEASE CAPSULE
     Route: 048
     Dates: start: 20100901
  13. LIPANOR [Suspect]
     Dosage: 100 MG, UNK
     Route: 048
  14. LIPANOR [Suspect]
     Dosage: UNK
     Dates: start: 20100901
  15. CALCIDOSE VITAMINE D [Suspect]
     Dosage: 500 MG, POWDER FOR SOLUTION
     Route: 048
     Dates: end: 20100810
  16. CALCIDOSE VITAMINE D [Suspect]
     Dosage: 500 MG, POWDER FOR SOLUTION
     Route: 048
     Dates: start: 20100901
  17. FOSAVANCE [Suspect]
     Dosage: 1/WEEK
     Route: 048
     Dates: end: 20100810
  18. FOSAVANCE [Suspect]
     Dosage: 1/WEEK
     Route: 048
     Dates: start: 20100901
  19. SKENAN [Suspect]
     Dosage: 30 MG, 2X/DAY
     Route: 048
     Dates: end: 20100810
  20. SKENAN [Suspect]
     Dosage: AT REQUEST
     Route: 048
  21. MORPHINE [Suspect]
     Dosage: UNK
  22. LEVOTHYROXINE SODIUM [Concomitant]
     Dosage: 125 MCG, UNK
  23. NEXIUM [Concomitant]
  24. EUPANTOL [Concomitant]
  25. PARACETAMOL [Concomitant]
  26. ZOLPIDEM [Concomitant]

REACTIONS (3)
  - ACIDOSIS [None]
  - LUNG DISORDER [None]
  - SEPSIS [None]
